FAERS Safety Report 24856989 (Version 1)
Quarter: 2025Q1

REPORT INFORMATION
  Report Type: Spontaneous
  Country: US (occurrence: US)
  Receive Date: 20250117
  Receipt Date: 20250117
  Transmission Date: 20250409
  Serious: Yes (Life-Threatening, Hospitalization)
  Sender: STRIDES
  Company Number: US-STRIDES ARCOLAB LIMITED-2025SP000747

PATIENT

DRUGS (6)
  1. HYDROCORTISONE [Suspect]
     Active Substance: HYDROCORTISONE
     Indication: Hypotension
     Route: 065
  2. MANNITOL [Suspect]
     Active Substance: MANNITOL
     Indication: Hypotension
     Route: 065
  3. INSULIN NOS [Concomitant]
     Active Substance: INSULIN NOS
     Indication: Diabetic ketoacidosis
     Route: 041
  4. INSULIN NOS [Concomitant]
     Active Substance: INSULIN NOS
     Route: 065
  5. INSULIN NOS [Concomitant]
     Active Substance: INSULIN NOS
     Route: 065
  6. SALINE [Concomitant]
     Active Substance: SODIUM CHLORIDE
     Indication: Depressed level of consciousness
     Route: 065

REACTIONS (3)
  - Multiple organ dysfunction syndrome [Unknown]
  - Hypotension [Unknown]
  - Drug ineffective [Unknown]
